FAERS Safety Report 7841428-7 (Version None)
Quarter: 2011Q4

REPORT INFORMATION
  Report Type: 
  Country: None (occurrence: None)
  Receive Date: 20111025
  Receipt Date: 20111017
  Transmission Date: 20120403
  Serious: Yes (Other)
  Sender: FDA-Public Use
  Company Number: CA-JNJFOC-20111008148

PATIENT

DRUGS (1)
  1. XARELTO [Suspect]
     Indication: ORTHOPEDIC PROCEDURE
     Route: 065

REACTIONS (1)
  - PULMONARY EMBOLISM [None]
